FAERS Safety Report 5735527-3 (Version None)
Quarter: 2008Q2

REPORT INFORMATION
  Report Type: 
  Country: None (occurrence: None)
  Receive Date: 20080512
  Receipt Date: 20080430
  Transmission Date: 20081010
  Serious: Yes (Death, Life-Threatening, Other)
  Sender: FDA-Public Use
  Company Number: US-PFIZER INC-2008015475

PATIENT
  Sex: Female
  Weight: 57.2 kg

DRUGS (6)
  1. VFEND [Suspect]
     Indication: CELLULITIS
     Route: 048
  2. CLINDAMYCIN HCL [Suspect]
  3. PRIMAXIN [Concomitant]
  4. VANCOMYCIN [Concomitant]
  5. FLUCONAZOLE [Concomitant]
  6. ACYCLOVIR SODIUM [Concomitant]

REACTIONS (14)
  - ADVERSE EVENT [None]
  - ANISOCYTOSIS [None]
  - HAEMATOCRIT DECREASED [None]
  - HAEMOGLOBIN DECREASED [None]
  - LEUKAEMIA [None]
  - LYMPHOCYTE COUNT DECREASED [None]
  - LYMPHOCYTE MORPHOLOGY ABNORMAL [None]
  - MONOCYTE COUNT INCREASED [None]
  - PLATELET COUNT DECREASED [None]
  - PLATELET TOXICITY [None]
  - RED BLOOD CELL COUNT DECREASED [None]
  - RED BLOOD CELL MORPHOLOGY ABNORMAL [None]
  - RED CELL DISTRIBUTION WIDTH INCREASED [None]
  - WHITE BLOOD CELL COUNT DECREASED [None]
